FAERS Safety Report 23594255 (Version 3)
Quarter: 2025Q1

REPORT INFORMATION
  Report Type: Spontaneous
  Country: CO (occurrence: CO)
  Receive Date: 20240305
  Receipt Date: 20250109
  Transmission Date: 20250409
  Serious: Yes (Other)
  Sender: CHEPLAPHARM
  Company Number: CO-ROCHE-3438064

PATIENT
  Age: 78 Year
  Sex: Female

DRUGS (11)
  1. CAPECITABINE [Suspect]
     Active Substance: CAPECITABINE
     Indication: Breast cancer
     Dosage: 1 GM TWICE A DAY?DAILY DOSE: 3 GRAM
     Route: 048
     Dates: start: 20200730, end: 20241219
  2. ONDANSETRON [Concomitant]
     Active Substance: ONDANSETRON
     Dosage: DAILY DOSE: 16 MILLIGRAM
     Route: 048
     Dates: start: 20200730
  3. CAPTOPRIL [Concomitant]
     Active Substance: CAPTOPRIL
     Dosage: DAILY DOSE: 50 MILLIGRAM
     Route: 048
     Dates: start: 20091026, end: 202409
  4. LOVASTATIN [Concomitant]
     Active Substance: LOVASTATIN
     Dosage: DAILY DOSE: 20 MILLIGRAM
     Route: 048
  5. PANTOPRAZOLE [Concomitant]
     Active Substance: PANTOPRAZOLE
     Dosage: DAILY DOSE: 40 MILLIGRAM
     Route: 048
     Dates: start: 20201005
  6. FLUTICASONE PROPIONATE\SALMETEROL XINAFOATE [Concomitant]
     Active Substance: FLUTICASONE PROPIONATE\SALMETEROL XINAFOATE
     Route: 055
     Dates: start: 20190801, end: 20240123
  7. DESLORATADINE [Concomitant]
     Active Substance: DESLORATADINE
     Dosage: DAILY DOSE: 5 MILLIGRAM
     Route: 048
  8. VILANTEROL [Concomitant]
     Active Substance: VILANTEROL
     Dates: start: 20240123
  9. AMLODIPINE [Concomitant]
     Active Substance: AMLODIPINE BESYLATE
     Route: 048
     Dates: start: 202409
  10. TELMISARTAN [Concomitant]
     Active Substance: TELMISARTAN
     Route: 048
     Dates: start: 202409
  11. FLUTICASONE [Concomitant]
     Active Substance: FLUTICASONE
     Dates: start: 20240123

REACTIONS (4)
  - Squamous cell carcinoma [Recovering/Resolving]
  - Onychomycosis [Recovered/Resolved]
  - Radiation skin injury [Recovering/Resolving]
  - Dengue fever [Recovered/Resolved]

NARRATIVE: CASE EVENT DATE: 20221022
